FAERS Safety Report 5390805-5 (Version None)
Quarter: 2007Q3

REPORT INFORMATION
  Report Type: 
  Country: None (occurrence: None)
  Receive Date: 20070716
  Receipt Date: 20070706
  Transmission Date: 20080115
  Serious: Yes (Disabling)
  Sender: FDA-Public Use
  Company Number: 2007AL002725

PATIENT
  Age: 50 Year
  Sex: Female

DRUGS (5)
  1. GABAPENTIN [Suspect]
     Dosage: 100 MG;TIW;PO
     Route: 048
     Dates: start: 20051001, end: 20051011
  2. PROPRANOLOL [Concomitant]
  3. RANITIDINE [Concomitant]
  4. PARACETAMOL [Concomitant]
  5. DICLOFENAC SODIUM [Concomitant]

REACTIONS (6)
  - CEREBRAL HAEMORRHAGE [None]
  - CEREBRAL ISCHAEMIA [None]
  - DISORIENTATION [None]
  - DYSPHASIA [None]
  - HALLUCINATION, VISUAL [None]
  - ILLUSION [None]
